FAERS Safety Report 8846028 (Version 1)
Quarter: 2012Q4

REPORT INFORMATION
  Report Type: 
  Country: US (occurrence: US)
  Receive Date: 20121017
  Receipt Date: 20121017
  Transmission Date: 20130627
  Serious: No
  Sender: FDA-Public Use
  Company Number: US-VERTEX PHARMACEUTICAL INC.-2012-022560

PATIENT
  Sex: Male

DRUGS (6)
  1. VX-950 [Suspect]
     Indication: HEPATITIS C
     Dosage: 750 mg, tid
     Route: 048
  2. PEGASYS [Suspect]
     Indication: HEPATITIS C
  3. RIBAVIRIN [Suspect]
     Indication: HEPATITIS C
     Dosage: 200 mg, UNK
     Route: 048
  4. LEVOTHYROXIN [Concomitant]
     Dosage: 25 ?g, UNK
     Route: 048
  5. TRUVADA [Concomitant]
     Route: 048
  6. ISENTRESS [Concomitant]
     Dosage: 400 mg, UNK
     Route: 048

REACTIONS (2)
  - Fatigue [Unknown]
  - Rash [Unknown]
